FAERS Safety Report 11194641 (Version 2)
Quarter: 2015Q2

REPORT INFORMATION
  Report Type: Spontaneous
  Country: US (occurrence: US)
  Receive Date: 20150617
  Receipt Date: 20150629
  Transmission Date: 20150821
  Serious: No
  Sender: FDA-Public Use
  Company Number: US-AMGEN-USASP2015057825

PATIENT
  Age: 83 Year
  Sex: Female

DRUGS (1)
  1. ENBREL [Suspect]
     Active Substance: ETANERCEPT
     Indication: RHEUMATOID ARTHRITIS
     Dosage: 50 MG, QWK
     Route: 065
     Dates: start: 20070201, end: 201505

REACTIONS (5)
  - Memory impairment [Not Recovered/Not Resolved]
  - Limb injury [Recovering/Resolving]
  - Erythema [Recovering/Resolving]
  - Impaired healing [Not Recovered/Not Resolved]
  - Drug ineffective [Recovered/Resolved]
